FAERS Safety Report 7237130 (Version 7)
Quarter: 2013Q4

REPORT INFORMATION
  Report Type: Spontaneous
  Country: US (occurrence: US)
  Receive Date: 20100105
  Receipt Date: 20131014
  Transmission Date: 20140711
  Serious: Yes (Hospitalization, Other)
  Sender: FDA-Public Use
  Company Number: US-BAYER-201010015NA

PATIENT
  Age: 36 Year
  Sex: Female
  Weight: 86.17 kg

DRUGS (16)
  1. YASMIN [Suspect]
     Indication: MENSTRUAL CYCLE MANAGEMENT
     Route: 048
     Dates: start: 2003, end: 2008
  2. OCELLA [Suspect]
     Indication: PRODUCT USED FOR UNKNOWN INDICATION
     Route: 048
  3. YAZ [Suspect]
     Indication: PRODUCT USED FOR UNKNOWN INDICATION
     Route: 048
  4. PROZAC [Concomitant]
     Indication: DEPRESSION
     Dosage: 40 MG, QD
  5. TRICOR [Concomitant]
     Indication: BLOOD CHOLESTEROL INCREASED
     Dosage: 145 MG, UNK
     Dates: start: 2007, end: 2008
  6. ANTIHISTAMINES [Concomitant]
  7. SINGULAIR [Concomitant]
  8. WELLBUTRIN [Concomitant]
  9. SYNTHROID [Concomitant]
  10. ALPRAZOLAM [Concomitant]
     Dosage: 0.5 MG, UNK
  11. ALBUTEROL [Concomitant]
     Dosage: 90 ?G, UNK
     Route: 055
  12. PROMETHAZINE W/CODEINE [Concomitant]
  13. FEXOFENADINE [Concomitant]
  14. NASONEX [Concomitant]
     Dosage: 50 ?G, UNK
  15. ASPIRIN [Concomitant]
  16. GABAPENTIN [Concomitant]

REACTIONS (3)
  - Gallbladder injury [Unknown]
  - Biliary dyskinesia [Not Recovered/Not Resolved]
  - Cholelithiasis [None]
